FAERS Safety Report 19108973 (Version 1)
Quarter: 2021Q2

REPORT INFORMATION
  Report Type: Report from Study
  Country: GB (occurrence: GB)
  Receive Date: 20210408
  Receipt Date: 20210408
  Transmission Date: 20210717
  Serious: Yes (Other)
  Sender: FDA-Public Use
  Company Number: GB-SAMSUNG BIOEPIS-SB-2020-36080

PATIENT
  Sex: Female

DRUGS (1)
  1. IMRALDI [Suspect]
     Active Substance: ADALIMUMAB
     Indication: RHEUMATOID ARTHRITIS
     Route: 058
     Dates: start: 202010

REACTIONS (16)
  - Injection site pain [Unknown]
  - Nausea [Unknown]
  - Injection site mass [Unknown]
  - Emotional distress [Unknown]
  - Injection site bruising [Unknown]
  - Vomiting [Unknown]
  - Agitation [Unknown]
  - Lethargy [Unknown]
  - Immunosuppression [Unknown]
  - Malaise [Unknown]
  - Injection site injury [Unknown]
  - Dizziness [Unknown]
  - Pyrexia [Unknown]
  - Wrong technique in product usage process [Unknown]
  - Crying [Not Recovered/Not Resolved]
  - Incorrect dose administered [Unknown]
